FAERS Safety Report 24068703 (Version 1)
Quarter: 2024Q3

REPORT INFORMATION
  Report Type: Spontaneous
  Country: GB (occurrence: GB)
  Receive Date: 20240710
  Receipt Date: 20240710
  Transmission Date: 20241016
  Serious: No
  Sender: ROCHE
  Company Number: GB-ROCHE-3552717

PATIENT
  Age: 25 Year
  Sex: Female

DRUGS (1)
  1. ENTRECTINIB [Suspect]
     Active Substance: ENTRECTINIB
     Indication: Lung adenocarcinoma
     Route: 065

REACTIONS (2)
  - Neurotoxicity [Unknown]
  - Weight increased [Unknown]
